FAERS Safety Report 9541722 (Version 1)
Quarter: 2013Q3

REPORT INFORMATION
  Report Type: Report from Study
  Country: RO (occurrence: RO)
  Receive Date: 20130923
  Receipt Date: 20130923
  Transmission Date: 20140515
  Serious: Yes (Other)
  Sender: FDA-Public Use
  Company Number: RO-ELI_LILLY_AND_COMPANY-RO201309004779

PATIENT
  Age: 30 Year
  Sex: Female

DRUGS (1)
  1. OLANZAPINE LONG-ACTING IM [Suspect]
     Indication: SCHIZOPHRENIA
     Dosage: 300 MG, UNK

REACTIONS (4)
  - Syncope [Unknown]
  - Dizziness [Unknown]
  - Dysstasia [Unknown]
  - Fall [Unknown]
